FAERS Safety Report 9550189 (Version 8)
Quarter: 2014Q2

REPORT INFORMATION
  Report Type: Report from Study
  Country: ES (occurrence: ES)
  Receive Date: 20130924
  Receipt Date: 20140516
  Transmission Date: 20141212
  Serious: Yes (Death, Hospitalization)
  Sender: FDA-Public Use
  Company Number: ES-ROCHE-1277055

PATIENT
  Age: 50 Year
  Sex: Female
  Weight: 80 kg

DRUGS (8)
  1. TRASTUZUMAB EMTANSINE [Suspect]
     Indication: HER-2 POSITIVE BREAST CANCER
     Dosage: LAST DOSE PRIOR TO SAE: 27/AUG/2013.
     Route: 042
     Dates: start: 20130312, end: 20130827
  2. DOXAZOSIN [Concomitant]
     Route: 065
     Dates: start: 2010, end: 20130909
  3. NAPROXEN [Concomitant]
     Route: 065
     Dates: start: 20130827, end: 20130909
  4. DIAZEPAM [Concomitant]
     Route: 065
     Dates: start: 20130827, end: 20130909
  5. OMEPRAZOLE [Concomitant]
     Route: 065
     Dates: start: 20130827, end: 20130909
  6. PARACETAMOL [Concomitant]
     Route: 065
     Dates: start: 20130827, end: 20130909
  7. ENALAPRIL [Concomitant]
     Route: 065
     Dates: start: 2010, end: 20130909
  8. ENALAPRIL/HYDROCHLOROTHIAZIDE [Concomitant]
     Route: 065
     Dates: start: 2010, end: 20130909

REACTIONS (1)
  - Multi-organ failure [Fatal]
